FAERS Safety Report 16737842 (Version 1)
Quarter: 2019Q3

REPORT INFORMATION
  Report Type: Spontaneous
  Country: US (occurrence: US)
  Receive Date: 20190824
  Receipt Date: 20190824
  Transmission Date: 20191005
  Serious: No
  Sender: FDA-Public Use
  Company Number: US-UNITED THERAPEUTICS-UNT-2019-013913

PATIENT
  Age: 71 Year
  Sex: Female
  Weight: 37.19 kg

DRUGS (3)
  1. REMODULIN [Suspect]
     Active Substance: TREPROSTINIL
     Indication: PULMONARY ARTERIAL HYPERTENSION
     Dosage: 0.032 ?G/KG, CONTINUING
     Route: 058
     Dates: start: 20190411
  2. REMODULIN [Suspect]
     Active Substance: TREPROSTINIL
     Dosage: 0.030 ?G/KG, CONTINUING
     Route: 058
  3. LETAIRIS [Concomitant]
     Active Substance: AMBRISENTAN
     Indication: PRODUCT USED FOR UNKNOWN INDICATION
     Dosage: UNK
     Route: 065

REACTIONS (8)
  - Decreased appetite [Recovering/Resolving]
  - Fatigue [Unknown]
  - Headache [Recovering/Resolving]
  - Diarrhoea [Recovering/Resolving]
  - Device issue [Unknown]
  - Pyrexia [Recovering/Resolving]
  - Gait disturbance [Recovering/Resolving]
  - Chest pain [Unknown]

NARRATIVE: CASE EVENT DATE: 201908
